FAERS Safety Report 13143254 (Version 2)
Quarter: 2017Q1

REPORT INFORMATION
  Report Type: Spontaneous
  Country: DE (occurrence: DE)
  Receive Date: 20170123
  Receipt Date: 20170221
  Transmission Date: 20170428
  Serious: Yes (Other)
  Sender: FDA-Public Use
  Company Number: DE-AMGEN-DEUSP2017010950

PATIENT
  Age: 58 Year
  Sex: Female

DRUGS (17)
  1. FELODIPIN [Concomitant]
     Active Substance: FELODIPINE
     Dosage: 10 UNK, UNK
  2. CARBAMAZEPIN [Concomitant]
     Active Substance: CARBAMAZEPINE
     Dosage: 600 MG, 1-0-1
  3. ASPIRIN. [Concomitant]
     Active Substance: ASPIRIN
     Dosage: 100 UNK, 1X/DAY
  4. TORASEMIDE [Concomitant]
     Active Substance: TORSEMIDE
     Dosage: 10 UNK, 1X1
  5. ENBREL [Suspect]
     Active Substance: ETANERCEPT
     Indication: RHEUMATOID ARTHRITIS
     Dosage: 50 MG, WEEKLY
     Route: 065
     Dates: start: 20160315, end: 20170116
  6. LAMOTRIGINE. [Concomitant]
     Active Substance: LAMOTRIGINE
     Dosage: 100 MG, 1 1/2-0-1 1/2
  7. EUTHYROX [Concomitant]
     Active Substance: LEVOTHYROXINE SODIUM
     Dosage: 100 UNK, 1X/DAY
  8. LAMICTAL [Concomitant]
     Active Substance: LAMOTRIGINE
     Dosage: 50 UNK, UNK
  9. PREDNISOLONE. [Concomitant]
     Active Substance: PREDNISOLONE
     Dosage: 1 DF, DAILY
  10. FINLEPSIN [Concomitant]
     Active Substance: CARBAMAZEPINE
     Dosage: 600 UNK, 2X1
  11. RAMIPLUS AL [Concomitant]
     Dosage: 5 UNK, UNK
  12. MTX [Concomitant]
     Active Substance: METHOTREXATE SODIUM
     Dosage: 15 MG, WEEKLY
  13. VALOCORDIN [Concomitant]
     Active Substance: BROMISOVAL\HOPS\PHENOBARBITAL
     Dosage: UNK
  14. BELOC-ZOK COMP [Concomitant]
     Active Substance: HYDROCHLOROTHIAZIDE\METOPROLOL SUCCINATE
     Dosage: 95 UNK, 1X/DAY
  15. HCTAD [Concomitant]
     Dosage: 1X1
  16. FOLSAN [Concomitant]
     Active Substance: FOLIC ACID
     Dosage: 5 MG, WEEKLY
  17. RAMIPLUS [Concomitant]
     Dosage: 5 UNK 1X1

REACTIONS (2)
  - Epilepsy [Recovered/Resolved]
  - Blood test abnormal [Recovering/Resolving]

NARRATIVE: CASE EVENT DATE: 20170113
